FAERS Safety Report 9109596 (Version 2)
Quarter: 2013Q2

REPORT INFORMATION
  Report Type: Spontaneous
  Country: US (occurrence: US)
  Receive Date: 20130222
  Receipt Date: 20130607
  Transmission Date: 20140414
  Serious: No
  Sender: FDA-Public Use
  Company Number: US-PFIZER INC-2013064986

PATIENT
  Sex: Male

DRUGS (1)
  1. ADVIL [Suspect]
     Dosage: 200 MG, UNK
     Route: 048

REACTIONS (3)
  - Poor quality drug administered [Unknown]
  - Arthropathy [Unknown]
  - Product commingling [Unknown]
